FAERS Safety Report 5917219-0 (Version None)
Quarter: 2008Q4

REPORT INFORMATION
  Report Type: 
  Country: None (occurrence: None)
  Receive Date: 20081014
  Receipt Date: 20081003
  Transmission Date: 20090506
  Serious: Yes (Hospitalization)
  Sender: FDA-Public Use
  Company Number: SE-AMGEN-UK311180

PATIENT
  Sex: Female

DRUGS (13)
  1. NEULASTA [Suspect]
     Indication: CHEMOTHERAPY
     Route: 058
     Dates: start: 20080101, end: 20080429
  2. CYCLOPHOSPHAMIDE [Suspect]
     Route: 042
     Dates: start: 20080101, end: 20080428
  3. ADRIAMYCIN PFS [Suspect]
     Dates: start: 20080101, end: 20080428
  4. UNSPECIFIED ANTINEOPLASTIC AGENT [Suspect]
     Route: 042
     Dates: start: 20080101, end: 20080428
  5. TAXOTERE [Concomitant]
  6. MOVICOL [Concomitant]
  7. OMEPRAZOLE [Concomitant]
  8. ZOPICLONE [Concomitant]
  9. LACTULOSE [Concomitant]
  10. PRIMPERAN [Concomitant]
     Route: 054
  11. PROPAVAN [Concomitant]
  12. LAXATIVES [Concomitant]
  13. OXAZEPAM [Concomitant]

REACTIONS (1)
  - ALVEOLITIS ALLERGIC [None]
